FAERS Safety Report 6384135-2 (Version None)
Quarter: 2009Q4

REPORT INFORMATION
  Report Type: 
  Country: None (occurrence: None)
  Receive Date: 20091001
  Receipt Date: 20090921
  Transmission Date: 20100525
  Serious: Yes (Other)
  Sender: FDA-Public Use
  Company Number: DE-ROCHE-640642

PATIENT
  Sex: Male
  Weight: 64 kg

DRUGS (5)
  1. COPEGUS [Suspect]
     Indication: HEPATITIS C
     Route: 048
     Dates: start: 20080927, end: 20090822
  2. PEGASYS [Suspect]
     Indication: HEPATITIS C
     Route: 058
     Dates: start: 20080927, end: 20090822
  3. OMEPRAZOLE [Concomitant]
  4. LORAZEPAM [Concomitant]
     Indication: DEPRESSION
  5. PAROXETINE HCL [Concomitant]
     Indication: PANIC DISORDER

REACTIONS (3)
  - ANAEMIA [None]
  - RETINAL HAEMORRHAGE [None]
  - THROMBOCYTOPENIA [None]
